FAERS Safety Report 7681479-9 (Version None)
Quarter: 2011Q3

REPORT INFORMATION
  Report Type: 
  Country: None (occurrence: None)
  Receive Date: 20110812
  Receipt Date: 20110804
  Transmission Date: 20111222
  Serious: Yes (Other)
  Sender: FDA-Public Use
  Company Number: PHHY2011GB70355

PATIENT
  Age: 26 Year
  Sex: Male

DRUGS (3)
  1. AZATHIOPRINE [Suspect]
     Indication: CROHN'S DISEASE
  2. PREDNISOLONE [Suspect]
     Indication: CROHN'S DISEASE
  3. METHOTREXATE [Suspect]
     Indication: CROHN'S DISEASE

REACTIONS (2)
  - SKIN LESION [None]
  - BASAL CELL CARCINOMA [None]
